FAERS Safety Report 21049883 (Version 3)
Quarter: 2022Q3

REPORT INFORMATION
  Report Type: Spontaneous
  Country: US (occurrence: US)
  Receive Date: 20220706
  Receipt Date: 20220830
  Transmission Date: 20221027
  Serious: Yes (Other)
  Sender: FDA-Public Use
  Company Number: US-PFIZER INC-202200916825

PATIENT
  Age: 83 Year
  Sex: Male

DRUGS (2)
  1. INLYTA [Suspect]
     Active Substance: AXITINIB
     Indication: Renal cell carcinoma
     Dosage: EVERY 12HRS BY MOUTH
     Route: 048
     Dates: start: 20220608
  2. INLYTA [Suspect]
     Active Substance: AXITINIB
     Dosage: 1 TABLET EVERY 12 HOURS
     Route: 048
     Dates: start: 20220630, end: 20220823

REACTIONS (3)
  - Rash [Not Recovered/Not Resolved]
  - Pruritus [Not Recovered/Not Resolved]
  - Skin exfoliation [Recovering/Resolving]

NARRATIVE: CASE EVENT DATE: 20220616
